FAERS Safety Report 11685201 (Version 1)
Quarter: 2015Q4

REPORT INFORMATION
  Report Type: Spontaneous
  Country: US (occurrence: US)
  Receive Date: 20151030
  Receipt Date: 20151030
  Transmission Date: 20160304
  Serious: Yes (Other)
  Sender: FDA-Public Use
  Company Number: US-ASTRAZENECA-2015SF03257

PATIENT
  Sex: Female
  Weight: 66.7 kg

DRUGS (1)
  1. BYETTA [Suspect]
     Active Substance: EXENATIDE
     Indication: TYPE 2 DIABETES MELLITUS
     Dosage: 250 MCG / 2.4 ML PEN 10 UG BID
     Route: 058

REACTIONS (3)
  - Synovial cyst [Unknown]
  - Weight decreased [Unknown]
  - Fall [Unknown]
